FAERS Safety Report 22249070 (Version 1)
Quarter: 2023Q2

REPORT INFORMATION
  Report Type: Spontaneous
  Country: AU (occurrence: AU)
  Receive Date: 20230425
  Receipt Date: 20230425
  Transmission Date: 20230721
  Serious: No
  Sender: FDA-Public Use
  Company Number: AU-009507513-2304AUS006747

PATIENT
  Age: 74 Year

DRUGS (1)
  1. LAGEVRIO [Suspect]
     Active Substance: MOLNUPIRAVIR
     Dosage: 2 CAPSULES IN THE MORNING AND 2 CAPSULES IN THE EVENING
     Route: 048

REACTIONS (2)
  - Incorrect dose administered [Unknown]
  - Product prescribing issue [Unknown]
